FAERS Safety Report 18916377 (Version 1)
Quarter: 2021Q1

REPORT INFORMATION
  Report Type: Other
  Country: GB (occurrence: FR)
  Receive Date: 20210219
  Receipt Date: 20210219
  Transmission Date: 20210420
  Serious: Yes (Hospitalization)
  Sender: FDA-Public Use
  Company Number: FR-ASTELLAS-2021US005743

PATIENT
  Age: 54 Year
  Sex: Female

DRUGS (1)
  1. ERLOTINIB [Suspect]
     Active Substance: ERLOTINIB
     Indication: LUNG ADENOCARCINOMA
     Route: 065

REACTIONS (3)
  - Dermatitis acneiform [Recovered/Resolved]
  - Alopecia scarring [Recovered/Resolved]
  - Folliculitis [Recovered/Resolved]
